FAERS Safety Report 23699224 (Version 2)
Quarter: 2024Q2

REPORT INFORMATION
  Report Type: Spontaneous
  Country: US (occurrence: US)
  Receive Date: 20240402
  Receipt Date: 20240521
  Transmission Date: 20240715
  Serious: No
  Sender: FDA-Public Use
  Company Number: US-PFIZER INC-202400075407

PATIENT
  Age: 66 Year
  Sex: Male

DRUGS (1)
  1. PAXLOVID [Suspect]
     Active Substance: NIRMATRELVIR\RITONAVIR
     Indication: COVID-19 immunisation
     Dosage: UNK
     Dates: start: 20240319, end: 20240322

REACTIONS (2)
  - Incorrect product administration duration [Unknown]
  - Symptom recurrence [Recovering/Resolving]

NARRATIVE: CASE EVENT DATE: 20240301
